FAERS Safety Report 24157761 (Version 1)
Quarter: 2024Q3

REPORT INFORMATION
  Report Type: Report from Study
  Country: ES (occurrence: ES)
  Receive Date: 20240731
  Receipt Date: 20240731
  Transmission Date: 20241017
  Serious: Yes (Other)
  Sender: TEVA
  Company Number: ES-TEVA-VS-3217147

PATIENT
  Age: 68 Year
  Sex: Female

DRUGS (3)
  1. TERIPARATIDE [Suspect]
     Active Substance: TERIPARATIDE
     Indication: Osteoporosis
     Dosage: 20 MCG
     Route: 065
     Dates: start: 20240517, end: 20240628
  2. TRAMADOL [Concomitant]
     Active Substance: TRAMADOL\TRAMADOL HYDROCHLORIDE
     Indication: Fibromyalgia
     Dosage: ON DEMAND; START DATE; LONG TIME AGO; END DATE: CONTINUED
     Route: 065
  3. Magnesio [Concomitant]
     Indication: Pain
     Dosage: 4 CAPSULES ON DEMAND; ;START DATE: LONG TIME AGO; END DATE: CONTINUED
     Route: 065

REACTIONS (9)
  - Abdominal distension [Not Recovered/Not Resolved]
  - Chest discomfort [Not Recovered/Not Resolved]
  - Headache [Not Recovered/Not Resolved]
  - Nausea [Not Recovered/Not Resolved]
  - Malaise [Unknown]
  - Limb discomfort [Not Recovered/Not Resolved]
  - Dry mouth [Not Recovered/Not Resolved]
  - Back pain [Not Recovered/Not Resolved]
  - Neck pain [Not Recovered/Not Resolved]

NARRATIVE: CASE EVENT DATE: 20240601
